FAERS Safety Report 4811831-8 (Version None)
Quarter: 2005Q4

REPORT INFORMATION
  Report Type: 
  Country: None (occurrence: None)
  Receive Date: 20051027
  Receipt Date: 20051027
  Transmission Date: 20060501
  Serious: No
  Sender: FDA-Public Use
  Company Number: None

PATIENT
  Sex: Female
  Weight: 10 kg

DRUGS (11)
  1. MICAFUNGIN [Suspect]
     Indication: CANDIDIASIS
     Dosage: 35 MG DAILY IV
     Route: 042
     Dates: start: 20050921, end: 20051005
  2. EPOGEN [Concomitant]
  3. CALCITRIOL [Concomitant]
  4. METHADONE [Concomitant]
  5. MYCOPHENOLATE [Concomitant]
  6. PREDNISOLONE [Concomitant]
  7. RANITIDINE [Concomitant]
  8. SUCRALFATE [Concomitant]
  9. TACROLIMUS [Concomitant]
  10. VALGANCICLOVIR [Concomitant]
  11. PENTAMIDINE [Concomitant]

REACTIONS (2)
  - INFUSION RELATED REACTION [None]
  - PYREXIA [None]
